FAERS Safety Report 17409226 (Version 2)
Quarter: 2020Q1

REPORT INFORMATION
  Report Type: Report from Study
  Country: AT (occurrence: AT)
  Receive Date: 20200212
  Receipt Date: 20200312
  Transmission Date: 20200409
  Serious: Yes (Hospitalization)
  Sender: FDA-Public Use
  Company Number: AT-PFIZER INC-2020049614

PATIENT
  Age: 67 Year
  Sex: Female
  Weight: 105 kg

DRUGS (5)
  1. RASILEZ HCT [Concomitant]
     Active Substance: ALISKIREN\HYDROCHLOROTHIAZIDE
     Indication: HYPERTENSION
     Dosage: [ALISKIREN FUMARAT 300 MG]/[HYDROCHLOROTHIAZIDE 125 MG], 1X/DAY (1 IN 1 D)
     Route: 048
  2. CYCLOPHOSPHAMIDE. [Suspect]
     Active Substance: CYCLOPHOSPHAMIDE
     Indication: B-CELL LYMPHOMA
     Dosage: INJECTION FOR INFUSION, 655.39 MG, 1X/DAY (1 IN 1 D)
     Route: 042
     Dates: start: 20190924, end: 20190926
  3. FLUDARABINE PHOSPHATE. [Suspect]
     Active Substance: FLUDARABINE PHOSPHATE
     Indication: B-CELL LYMPHOMA
     Dosage: 65.54 MG, 1X/DAY (1 IN 1 D)
     Route: 042
     Dates: start: 20190924, end: 20190926
  4. METOHEXAL [METOPROLOL TARTRATE] [Concomitant]
     Active Substance: METOPROLOL TARTRATE
     Indication: CORONARY ARTERY DISEASE
     Dosage: 95 MG, 1X/DAY (1 IN 1 D)
     Route: 048
  5. JCAR017 [Suspect]
     Active Substance: LISOCABTAGENE MARALEUCEL
     Indication: B-CELL LYMPHOMA
     Dosage: 1.7 ML CD4+ AND 2.2 ML CD8+, SINGLE
     Route: 042
     Dates: start: 20191001, end: 20191001

REACTIONS (3)
  - Pancytopenia [Recovered/Resolved]
  - Sepsis [Recovered/Resolved]
  - Febrile neutropenia [Recovered/Resolved]

NARRATIVE: CASE EVENT DATE: 20191013
